FAERS Safety Report 5859420-0 (Version None)
Quarter: 2008Q3

REPORT INFORMATION
  Report Type: 
  Country: None (occurrence: None)
  Receive Date: 20080827
  Receipt Date: 20080825
  Transmission Date: 20090109
  Serious: Yes (Hospitalization, Other)
  Sender: FDA-Public Use
  Company Number: US-TEVA-172440USA

PATIENT
  Sex: Male
  Weight: 83.536 kg

DRUGS (3)
  1. CLOZAPINE [Suspect]
     Indication: SCHIZOPHRENIA
     Route: 048
     Dates: start: 20060101, end: 20080510
  2. GLYCOPYRRONIUM BROMIDE [Concomitant]
     Dosage: QHS
  3. VALPROIC ACID [Concomitant]

REACTIONS (2)
  - GASTROINTESTINAL NECROSIS [None]
  - ORGAN FAILURE [None]
